FAERS Safety Report 16048049 (Version 1)
Quarter: 2019Q1

REPORT INFORMATION
  Report Type: Spontaneous
  Country: US (occurrence: US)
  Receive Date: 20190307
  Receipt Date: 20190307
  Transmission Date: 20190418
  Serious: No
  Sender: FDA-Public Use
  Company Number: US-B.I. PHARMACEUTICALS,INC./RIDGEFIELD-2019-BI-009207

PATIENT
  Sex: Male

DRUGS (2)
  1. OFEV [Suspect]
     Active Substance: NINTEDANIB
     Indication: IDIOPATHIC PULMONARY FIBROSIS
     Dosage: ADMINISTRATION CORRECT? NR (NOT REPORTED); ACTION(S) TAKEN WITH PRODUCT: DRUG REDUCED
     Route: 048
     Dates: end: 201901
  2. OFEV [Suspect]
     Active Substance: NINTEDANIB
     Dosage: ADMINISTRATION CORRECT? NR (NOT REPORTED); ACTION(S) TAKEN WITH PRODUCT: NOT REPORTED
     Route: 048
     Dates: start: 201901

REACTIONS (4)
  - Nausea [Recovered/Resolved]
  - Eructation [Not Recovered/Not Resolved]
  - Decreased appetite [Recovered/Resolved]
  - Flatulence [Not Recovered/Not Resolved]
